FAERS Safety Report 21156005 (Version 1)
Quarter: 2022Q3

REPORT INFORMATION
  Report Type: Spontaneous
  Country: US (occurrence: None)
  Receive Date: 20220729
  Receipt Date: 20220729
  Transmission Date: 20221026
  Serious: Yes (Life-Threatening, Hospitalization)
  Sender: FDA-Public Use
  Company Number: None

PATIENT
  Age: 67 Year
  Sex: Male
  Weight: 84.6 kg

DRUGS (8)
  1. CITROMA [Suspect]
     Active Substance: MAGNESIUM CITRATE
     Indication: Bowel preparation
     Dosage: OTHER QUANTITY : 1 10 FL OZ;?FREQUENCY : ONCE;?
     Route: 048
     Dates: start: 20220627, end: 20220627
  2. METOPROLOL [Concomitant]
     Active Substance: METOPROLOL
  3. ADDERALL [Concomitant]
     Active Substance: AMPHETAMINE ASPARTATE\AMPHETAMINE SULFATE\DEXTROAMPHETAMINE SACCHARATE\DEXTROAMPHETAMINE SULFATE
  4. PLAVIX [Concomitant]
     Active Substance: CLOPIDOGREL BISULFATE
  5. TADALAFIL [Concomitant]
     Active Substance: TADALAFIL
  6. PRILOSEC [Concomitant]
     Active Substance: OMEPRAZOLE MAGNESIUM
  7. COENZYME Q10 [Concomitant]
     Active Substance: DIETARY SUPPLEMENT\UBIDECARENONE
  8. B-12 [Concomitant]

REACTIONS (6)
  - Systemic inflammatory response syndrome [None]
  - Hairy cell leukaemia [None]
  - Recalled product administered [None]
  - Product contamination microbial [None]
  - Dysuria [None]
  - Dysuria [None]

NARRATIVE: CASE EVENT DATE: 20220709
